FAERS Safety Report 25470346 (Version 1)
Quarter: 2025Q2

REPORT INFORMATION
  Report Type: Report from Study
  Country: US (occurrence: US)
  Receive Date: 20250623
  Receipt Date: 20250623
  Transmission Date: 20250716
  Serious: Yes (Other)
  Sender: JOHNSON AND JOHNSON
  Company Number: US-JNJFOC-20250619482

PATIENT

DRUGS (1)
  1. INFLIXIMAB [Suspect]
     Active Substance: INFLIXIMAB
     Indication: Autoimmune hepatitis
     Route: 041

REACTIONS (10)
  - Pneumonia bacterial [Recovering/Resolving]
  - Cytomegalovirus colitis [Recovering/Resolving]
  - Transaminases increased [Unknown]
  - Urinary tract infection [Recovering/Resolving]
  - Oral herpes [Recovering/Resolving]
  - Oral candidiasis [Recovering/Resolving]
  - Drug specific antibody present [Unknown]
  - Hypersensitivity [Unknown]
  - Drug ineffective [Unknown]
  - Off label use [Unknown]
